FAERS Safety Report 7547105-4 (Version None)
Quarter: 2011Q2

REPORT INFORMATION
  Report Type: 
  Country: None (occurrence: None)
  Receive Date: 20110614
  Receipt Date: 20110610
  Transmission Date: 20111010
  Serious: Yes (Hospitalization)
  Sender: FDA-Public Use
  Company Number: US-CEPHALON-2011002331

PATIENT
  Sex: Female
  Weight: 47 kg

DRUGS (14)
  1. LIDOCAINE [Concomitant]
     Route: 061
  2. METOPROLOL [Concomitant]
  3. FLUCONAZOLE [Concomitant]
  4. TREANDA [Suspect]
     Route: 042
     Dates: start: 20110502, end: 20110506
  5. IDARUBICIN HCL [Suspect]
     Indication: ACUTE MYELOID LEUKAEMIA
     Route: 042
     Dates: start: 20110309, end: 20110310
  6. OMEPRAZOLE [Concomitant]
  7. ONDANSETRON [Concomitant]
  8. ACYCLOVIR [Concomitant]
  9. TREANDA [Suspect]
     Indication: ACUTE MYELOID LEUKAEMIA
     Route: 042
     Dates: start: 20110309, end: 20110313
  10. IDARUBICIN HCL [Suspect]
     Route: 042
     Dates: start: 20110509, end: 20110510
  11. AMOXICILLIN AND CLAVULANATE POTASSIUM [Concomitant]
  12. DOXYCYCLINE [Concomitant]
  13. VERAPAMIL EXTENDED-RELEASE [Concomitant]
  14. ENALAPRIL MALEATE [Concomitant]

REACTIONS (2)
  - FEBRILE NEUTROPENIA [None]
  - STAPHYLOCOCCAL BACTERAEMIA [None]
